FAERS Safety Report 25567291 (Version 1)
Quarter: 2025Q3

REPORT INFORMATION
  Report Type: Spontaneous
  Country: US (occurrence: US)
  Receive Date: 20250716
  Receipt Date: 20250716
  Transmission Date: 20251020
  Serious: Yes (Hospitalization, Other)
  Sender: NOVO NORDISK
  Company Number: US-NOVOPROD-1339511

PATIENT
  Age: 55 Year
  Sex: Female
  Weight: 104.76 kg

DRUGS (29)
  1. OZEMPIC [Suspect]
     Active Substance: SEMAGLUTIDE
     Indication: Type 2 diabetes mellitus
     Dosage: 0.25 MG, QW
     Dates: start: 20220201, end: 20220301
  2. OZEMPIC [Suspect]
     Active Substance: SEMAGLUTIDE
     Dosage: 0.5 MG, QW
     Dates: start: 20220301, end: 20221024
  3. OZEMPIC [Suspect]
     Active Substance: SEMAGLUTIDE
     Dosage: 0.25 MG, QW
     Dates: start: 20230109, end: 20230206
  4. OZEMPIC [Suspect]
     Active Substance: SEMAGLUTIDE
     Dosage: 0.5 MG, QW
     Dates: start: 20230206, end: 20230523
  5. TRULICITY [Suspect]
     Active Substance: DULAGLUTIDE
     Indication: Type 2 diabetes mellitus
     Dates: start: 20210812, end: 20210909
  6. TRULICITY [Suspect]
     Active Substance: DULAGLUTIDE
     Dates: start: 20221024, end: 20230109
  7. MOUNJARO [Suspect]
     Active Substance: TIRZEPATIDE
     Indication: Type 2 diabetes mellitus
     Dosage: 0.25 MG, QW
     Dates: start: 20230719, end: 20231109
  8. BENZTROPINE [Concomitant]
     Active Substance: BENZTROPINE
     Indication: Adverse drug reaction
     Dates: start: 20210602
  9. TIZANIDINE [Concomitant]
     Active Substance: TIZANIDINE
     Indication: Muscle relaxant therapy
     Dates: start: 20201215
  10. GABAPENTIN [Concomitant]
     Active Substance: GABAPENTIN
     Indication: Neuropathy peripheral
     Dates: start: 20200728
  11. ROSUVASTATIN [Concomitant]
     Active Substance: ROSUVASTATIN
     Indication: Blood cholesterol increased
     Dates: start: 20220302, end: 20231227
  12. LINZESS [Concomitant]
     Active Substance: LINACLOTIDE
     Indication: Irritable bowel syndrome
     Dates: start: 20220315, end: 20220518
  13. LORATADINE [Concomitant]
     Active Substance: LORATADINE
     Indication: Hypersensitivity
     Dates: start: 20220315, end: 20220808
  14. PROAIR HFA [Concomitant]
     Active Substance: ALBUTEROL SULFATE
     Indication: Dyspnoea
     Dates: start: 20220315, end: 20220915
  15. OXYCODONE [Concomitant]
     Active Substance: OXYCODONE
     Indication: Pain management
     Dates: start: 20180609
  16. SUCRALFATE [Concomitant]
     Active Substance: SUCRALFATE
     Indication: Gastrooesophageal reflux disease
     Dates: start: 20220621, end: 20220808
  17. FAMOTIDINE [Concomitant]
     Active Substance: FAMOTIDINE
     Indication: Gastrooesophageal reflux disease
     Dates: start: 20210602
  18. NYSTOP [Concomitant]
     Active Substance: NYSTATIN
     Indication: Antifungal treatment
     Dates: start: 20230104, end: 20231010
  19. METHYLPREDNISOLONE [Concomitant]
     Active Substance: METHYLPREDNISOLONE
     Indication: Sinusitis
     Dates: start: 20200928
  20. CLENPIQ [Concomitant]
     Active Substance: ANHYDROUS CITRIC ACID\MAGNESIUM OXIDE\SODIUM PICOSULFATE
     Indication: Drug therapy
     Dates: start: 20220217, end: 20220218
  21. CYCLOPENTOLATE [Concomitant]
     Active Substance: CYCLOPENTOLATE
     Indication: Mydriasis
     Dates: start: 20220429, end: 20220430
  22. PREVIDENT [Concomitant]
     Active Substance: SODIUM FLUORIDE
     Indication: Hyperaesthesia teeth
  23. PREVIDENT [Concomitant]
     Active Substance: SODIUM FLUORIDE
     Indication: Dental caries
     Dates: start: 20231010
  24. VITAMIN D NOS [Concomitant]
     Active Substance: CHOLECALCIFEROL\ERGOCALCIFEROL
     Indication: Supplementation therapy
     Dates: start: 20220218, end: 20220808
  25. MELATONIN [Concomitant]
     Active Substance: MELATONIN
     Indication: Sleep disorder therapy
     Dates: start: 20201009
  26. PAPAYA ENZYMES [Concomitant]
     Indication: Probiotic therapy
     Dates: start: 20220414
  27. GLIMEPIRIDE [Concomitant]
     Active Substance: GLIMEPIRIDE
     Indication: Type 2 diabetes mellitus
     Dates: start: 20221104, end: 20221204
  28. LOSARTAN [Concomitant]
     Active Substance: LOSARTAN
     Indication: Hypertension
     Dates: start: 20210222, end: 20211201
  29. BYETTA [Concomitant]
     Active Substance: EXENATIDE
     Indication: Type 2 diabetes mellitus
     Dates: start: 20230606, end: 20230926

REACTIONS (7)
  - Cholecystectomy [Recovered/Resolved]
  - Impaired gastric emptying [Not Recovered/Not Resolved]
  - Depression [Unknown]
  - Anxiety [Unknown]
  - Agoraphobia [Unknown]
  - Dyspepsia [Not Recovered/Not Resolved]
  - Constipation [Not Recovered/Not Resolved]

NARRATIVE: CASE EVENT DATE: 20211018
